FAERS Safety Report 10072025 (Version 1)
Quarter: 2014Q2

REPORT INFORMATION
  Report Type: Spontaneous
  Country: US (occurrence: US)
  Receive Date: 20140411
  Receipt Date: 20140411
  Transmission Date: 20141212
  Serious: No
  Sender: FDA-Public Use
  Company Number: US-B.I. PHARMACEUTICALS,INC./RIDGEFIELD-2014-BI-14694BP

PATIENT
  Sex: 0

DRUGS (4)
  1. SPIRIVA [Suspect]
     Indication: CHRONIC OBSTRUCTIVE PULMONARY DISEASE
     Route: 065
  2. SEREVENT [Concomitant]
     Route: 065
  3. ADVAIR [Concomitant]
     Route: 065
  4. DULERA [Concomitant]
     Route: 065

REACTIONS (1)
  - Drug ineffective [Unknown]
